FAERS Safety Report 21484430 (Version 1)
Quarter: 2022Q4

REPORT INFORMATION
  Report Type: Spontaneous
  Country: US (occurrence: US)
  Receive Date: 20221020
  Receipt Date: 20221020
  Transmission Date: 20230112
  Serious: No
  Sender: FDA-Public Use
  Company Number: US-Zogenix International Limited, A wholly owned subsidiary of Zogenix, Inc.-2022ZX001000

PATIENT
  Sex: Female

DRUGS (1)
  1. FINTEPLA [Suspect]
     Active Substance: FENFLURAMINE
     Indication: Product used for unknown indication
     Dosage: CURRENT DOSING PER ACTIVE PRESCRIPTION 3.2 ML (7.04 MG) TWICE A DAY (BID)
     Route: 048
     Dates: start: 20210308

REACTIONS (1)
  - COVID-19 [Unknown]
